FAERS Safety Report 17687279 (Version 1)
Quarter: 2020Q2

REPORT INFORMATION
  Report Type: Spontaneous
  Country: JP (occurrence: JP)
  Receive Date: 20200421
  Receipt Date: 20200421
  Transmission Date: 20200714
  Serious: Yes (Other)
  Sender: FDA-Public Use
  Company Number: JP-TEVA-2020-JP-002980J

PATIENT
  Age: 83 Year
  Sex: Male

DRUGS (1)
  1. CERCINE [Suspect]
     Active Substance: DIAZEPAM
     Indication: PRODUCT USED FOR UNKNOWN INDICATION
     Route: 048
     Dates: start: 20200403

REACTIONS (4)
  - Benzodiazepine drug level abnormal [Unknown]
  - Altered state of consciousness [Not Recovered/Not Resolved]
  - Prescription drug used without a prescription [Unknown]
  - Product use issue [Unknown]

NARRATIVE: CASE EVENT DATE: 202004
